FAERS Safety Report 12453643 (Version 1)
Quarter: 2016Q2

REPORT INFORMATION
  Report Type: Spontaneous
  Country: US (occurrence: US)
  Receive Date: 20160609
  Receipt Date: 20160609
  Transmission Date: 20160815
  Serious: Yes (Other)
  Sender: FDA-Public Use
  Company Number: US-ELI_LILLY_AND_COMPANY-US201606001306

PATIENT
  Sex: Female

DRUGS (6)
  1. HUMALOG MIX75/25 [Suspect]
     Active Substance: INSULIN LISPRO
     Indication: TYPE 2 DIABETES MELLITUS
     Dosage: 50 U, EACH MORNING
     Route: 065
     Dates: start: 2006
  2. HUMALOG MIX75/25 [Suspect]
     Active Substance: INSULIN LISPRO
     Dosage: 50 U, EACH MORNING
     Route: 065
  3. HUMALOG MIX75/25 [Suspect]
     Active Substance: INSULIN LISPRO
     Dosage: 50 U, EACH MORNING
     Route: 065
  4. HUMALOG MIX75/25 [Suspect]
     Active Substance: INSULIN LISPRO
     Dosage: 44 U, EACH EVENING
     Route: 065
     Dates: start: 2006
  5. HUMALOG MIX75/25 [Suspect]
     Active Substance: INSULIN LISPRO
     Dosage: 44 U, EACH EVENING
     Route: 065
  6. HUMALOG MIX75/25 [Suspect]
     Active Substance: INSULIN LISPRO
     Dosage: 44 U, EACH EVENING
     Route: 065

REACTIONS (9)
  - Aphasia [Unknown]
  - Stomatitis [Unknown]
  - Gout [Unknown]
  - Chronic obstructive pulmonary disease [Unknown]
  - Anaemia [Not Recovered/Not Resolved]
  - Fatigue [Unknown]
  - Blood glucose abnormal [Unknown]
  - Blood glucose increased [Unknown]
  - Meniscus injury [Unknown]

NARRATIVE: CASE EVENT DATE: 2012
